FAERS Safety Report 4846566-9 (Version None)
Quarter: 2005Q4

REPORT INFORMATION
  Report Type: 
  Country: None (occurrence: None)
  Receive Date: 20051202
  Receipt Date: 20051118
  Transmission Date: 20060501
  Serious: Yes (Hospitalization, Other)
  Sender: FDA-Public Use
  Company Number: KII-2005-0019821

PATIENT
  Age: 53 Year
  Sex: Female

DRUGS (7)
  1. OXYCODONE HCL [Suspect]
     Dosage: ORAL
     Route: 048
  2. CYCLOBENZAPRINE HCL [Suspect]
     Dosage: ORAL
     Route: 048
  3. PHENOBARB(PHENOBARBITAL SODIUM) [Suspect]
     Dosage: ORAL
     Route: 048
  4. TRAMADOL HCL [Suspect]
     Dosage: ORAL
     Route: 048
  5. ETHANOL(ETHANOL) [Suspect]
     Dosage: ORAL
     Route: 048
  6. ESTROGENS [Suspect]
  7. ACETAMINOPHEN [Suspect]

REACTIONS (10)
  - BLOOD CREATINE PHOSPHOKINASE INCREASED [None]
  - BLOOD CREATINE PHOSPHOKINASE MB INCREASED [None]
  - BLOOD POTASSIUM DECREASED [None]
  - BLOOD PRESSURE INCREASED [None]
  - BLOOD PRESSURE SYSTOLIC DECREASED [None]
  - COMA [None]
  - HEART RATE INCREASED [None]
  - MULTIPLE DRUG OVERDOSE [None]
  - PROTHROMBIN TIME PROLONGED [None]
  - VOMITING [None]
